FAERS Safety Report 8065594-6 (Version None)
Quarter: 2012Q1

REPORT INFORMATION
  Report Type: 
  Country: None (occurrence: None)
  Receive Date: 20120124
  Receipt Date: 20120117
  Transmission Date: 20120608
  Serious: Yes (Death, Other)
  Sender: FDA-Public Use
  Company Number: IT-CELGENEUS-083-21880-11121365

PATIENT
  Sex: Male

DRUGS (11)
  1. REVLIMID [Suspect]
     Route: 048
  2. XANAX [Concomitant]
     Route: 065
  3. DENIBAN [Concomitant]
     Dosage: 1 TABLET
     Route: 048
  4. CALCIUM [Concomitant]
     Dosage: 2 TABLET
     Route: 065
  5. ZOMETA [Concomitant]
     Route: 065
     Dates: start: 20090203
  6. OMEPRAZOLE [Concomitant]
     Route: 065
  7. TRAMADOL HCL [Concomitant]
     Route: 065
  8. ZOMETA [Concomitant]
     Route: 065
     Dates: start: 20091026
  9. ZOMETA [Concomitant]
     Route: 065
     Dates: start: 20110603
  10. REVLIMID [Suspect]
     Indication: MULTIPLE MYELOMA
     Dosage: 10 MILLIGRAM
     Route: 048
     Dates: start: 20080922, end: 20100106
  11. ZOMETA [Concomitant]
     Route: 065
     Dates: start: 20080922

REACTIONS (1)
  - BLADDER CANCER [None]
